FAERS Safety Report 9074754 (Version 1)
Quarter: 2013Q1

REPORT INFORMATION
  Report Type: Spontaneous
  Country: GB (occurrence: GB)
  Receive Date: 20130129
  Receipt Date: 20130129
  Transmission Date: 20140127
  Serious: Yes (Death, Hospitalization)
  Sender: FDA-Public Use
  Company Number: GB-INCYTE CORPORATION-2013IN000115

PATIENT
  Sex: Female
  Weight: 50 kg

DRUGS (4)
  1. JAKAVI [Suspect]
     Indication: MYELOFIBROSIS
     Dosage: 20 MG, UNK
     Route: 048
     Dates: start: 20120830
  2. WARFARIN [Concomitant]
  3. DEXAMETHASONE [Concomitant]
     Dosage: 4 MG, UNK
     Dates: start: 20120801
  4. HYDROXYCHLOROQUINE [Concomitant]

REACTIONS (4)
  - Biliary tract infection [Fatal]
  - Acute abdomen [Fatal]
  - Peritonitis [Fatal]
  - General physical health deterioration [Fatal]
